FAERS Safety Report 21600956 (Version 2)
Quarter: 2022Q4

REPORT INFORMATION
  Report Type: Spontaneous
  Country: JP (occurrence: JP)
  Receive Date: 20221116
  Receipt Date: 20221124
  Transmission Date: 20230113
  Serious: Yes (Hospitalization)
  Sender: FDA-Public Use
  Company Number: JP-MSD-2211JPN000879J

PATIENT
  Age: 41 Year
  Sex: Female

DRUGS (2)
  1. STROMECTOL [Suspect]
     Active Substance: IVERMECTIN
     Indication: COVID-19 prophylaxis
     Dosage: 12 MILLIGRAM
     Route: 048
     Dates: start: 2021
  2. STROMECTOL [Suspect]
     Active Substance: IVERMECTIN
     Dosage: 36 MILLIGRAM
     Route: 048
     Dates: start: 202203

REACTIONS (2)
  - Liver disorder [Recovering/Resolving]
  - Product use in unapproved indication [Unknown]

NARRATIVE: CASE EVENT DATE: 20210101
